FAERS Safety Report 4440349-X (Version None)
Quarter: 2004Q3

REPORT INFORMATION
  Report Type: 
  Country: None (occurrence: None)
  Receive Date: 20040831
  Receipt Date: 20040831
  Transmission Date: 20050211
  Serious: Yes (Other)
  Sender: FDA-Public Use
  Company Number: None

PATIENT
  Age: 37 Year
  Sex: Male
  Weight: 77.1115 kg

DRUGS (4)
  1. ZITHROMAX [Suspect]
     Indication: EYELID DISORDER
     Dosage: 500 MG DAY 1, THEN 250 MG DAILY
     Dates: start: 20040818, end: 20040820
  2. ZITHROMAX [Suspect]
     Indication: INJURY
     Dosage: 500 MG DAY 1, THEN 250 MG DAILY
     Dates: start: 20040818, end: 20040820
  3. ZITHROMAX [Suspect]
     Indication: PROPHYLAXIS
     Dosage: 500 MG DAY 1, THEN 250 MG DAILY
     Dates: start: 20040818, end: 20040820
  4. TOBREX EYE OINTMENT [Concomitant]

REACTIONS (5)
  - DIARRHOEA [None]
  - FEELING ABNORMAL [None]
  - GASTRIC DISORDER [None]
  - INFLUENZA LIKE ILLNESS [None]
  - PAIN OF SKIN [None]
